FAERS Safety Report 7757733-9 (Version None)
Quarter: 2011Q3

REPORT INFORMATION
  Report Type: 
  Country: None (occurrence: None)
  Receive Date: 20110916
  Receipt Date: 20110118
  Transmission Date: 20111222
  Serious: No
  Sender: FDA-Public Use
  Company Number: US-ALLERGAN-1100731US

PATIENT
  Age: 72 Year
  Sex: Male

DRUGS (1)
  1. ACUVAIL [Suspect]
     Indication: PREOPERATIVE CARE
     Dosage: 1 GTT, TID
     Route: 047
     Dates: start: 20110117

REACTIONS (3)
  - EYE PAIN [None]
  - EYE IRRITATION [None]
  - LACRIMATION INCREASED [None]
